FAERS Safety Report 19738597 (Version 1)
Quarter: 2021Q3

REPORT INFORMATION
  Report Type: Spontaneous
  Country: FR (occurrence: FR)
  Receive Date: 20210823
  Receipt Date: 20210823
  Transmission Date: 20211014
  Serious: Yes (Other)
  Sender: FDA-Public Use
  Company Number: FR-MYLANLABS-2021M1054094

PATIENT
  Age: 57 Year
  Sex: Male

DRUGS (4)
  1. PYOSTACINE [Suspect]
     Active Substance: PRISTINAMYCIN
     Indication: SKIN INFECTION
     Dosage: 6 DOSAGE FORM, QD
     Route: 048
     Dates: start: 20210223
  2. THIOCOLCHICOSIDE [Suspect]
     Active Substance: THIOCOLCHICOSIDE
     Indication: PAIN
     Dosage: 2 DOSAGE FORM, QD
     Route: 048
     Dates: start: 20210223
  3. PREDNISONE. [Suspect]
     Active Substance: PREDNISONE
     Indication: RHEUMATOID ARTHRITIS
     Dosage: 3 DOSAGE FORM, QD
     Route: 048
     Dates: start: 20210224
  4. UPADACITINIB [Suspect]
     Active Substance: UPADACITINIB
     Indication: RHEUMATOID ARTHRITIS
     Dosage: 1 DOSAGE FORM, QD
     Route: 048
     Dates: start: 20210115

REACTIONS (2)
  - Malaise [Recovered/Resolved]
  - Withdrawal hypertension [Recovered/Resolved]

NARRATIVE: CASE EVENT DATE: 20210224
